FAERS Safety Report 20052927 (Version 1)
Quarter: 2021Q4

REPORT INFORMATION
  Report Type: Spontaneous
  Country: CA (occurrence: CA)
  Receive Date: 20211110
  Receipt Date: 20211110
  Transmission Date: 20220303
  Serious: Yes (Other)
  Sender: FDA-Public Use
  Company Number: None

PATIENT
  Age: 11 Year
  Sex: Male

DRUGS (3)
  1. IRINOTECAN [Suspect]
     Active Substance: IRINOTECAN
     Indication: Product used for unknown indication
  2. TEMOZOLOMIDE [Suspect]
     Active Substance: TEMOZOLOMIDE
     Indication: Product used for unknown indication
  3. DINUTUXIMAB [Suspect]
     Active Substance: DINUTUXIMAB
     Indication: Product used for unknown indication
     Route: 042

REACTIONS (8)
  - Abdominal pain [Unknown]
  - Anxiety [Unknown]
  - Bone marrow failure [Unknown]
  - Nausea [Unknown]
  - Neoplasm progression [Unknown]
  - Nerve compression [Unknown]
  - Pain [Unknown]
  - Vomiting [Unknown]
